FAERS Safety Report 9688986 (Version 1)
Quarter: 2013Q4

REPORT INFORMATION
  Report Type: Spontaneous
  Country: JP (occurrence: JP)
  Receive Date: 20131114
  Receipt Date: 20131114
  Transmission Date: 20140711
  Serious: Yes (Death)
  Sender: FDA-Public Use
  Company Number: JP-GLAXOSMITHKLINE-B0942429A

PATIENT
  Sex: 0

DRUGS (2)
  1. ALKERAN [Suspect]
     Indication: PRODUCT USED FOR UNKNOWN INDICATION
     Route: 042
  2. FLUDARABINE PHOSPHATE [Concomitant]

REACTIONS (1)
  - Hepatic vein occlusion [Fatal]
